FAERS Safety Report 24730587 (Version 1)
Quarter: 2024Q4

REPORT INFORMATION
  Report Type: Report from Study
  Country: FR (occurrence: FR)
  Receive Date: 20241213
  Receipt Date: 20241213
  Transmission Date: 20250115
  Serious: Yes (Other)
  Sender: AUROBINDO
  Company Number: FR-AMGEN-FRASP2024113705

PATIENT
  Age: 14 Month
  Weight: 8.5 kg

DRUGS (3)
  1. CINACALCET [Suspect]
     Active Substance: CINACALCET
     Indication: Hyperparathyroidism secondary
     Dosage: 1.2 MILLIGRAM/KILOGRAM, ONCE A DAY (1.2 MILLIGRAM/KILOGRAM, QD (INITIAL AND MAXIMUM DOSE))
     Route: 065
  2. ALFACALCIDOL [Concomitant]
     Active Substance: ALFACALCIDOL
     Indication: Vitamin supplementation
     Dosage: 0.2 MICROGRAM, ONCE A DAY (0.2 MICROGRAM, QD)
     Route: 065
  3. SEVELAMER [Concomitant]
     Active Substance: SEVELAMER
     Indication: Hyperphosphataemia
     Dosage: UNK
     Route: 065

REACTIONS (2)
  - Hypocalcaemia [Unknown]
  - Off label use [Unknown]
